FAERS Safety Report 24344375 (Version 1)
Quarter: 2024Q3

REPORT INFORMATION
  Report Type: Spontaneous
  Country: US (occurrence: None)
  Receive Date: 20240919
  Receipt Date: 20240919
  Transmission Date: 20241017
  Serious: Yes (Other)
  Sender: Public
  Company Number: None

PATIENT
  Age: 82 Year
  Sex: Female

DRUGS (1)
  1. PERMETHRIN [Suspect]
     Active Substance: PERMETHRIN
     Indication: Mite allergy
     Dates: start: 20240601, end: 20240901

REACTIONS (2)
  - Headache [None]
  - Pain [None]

NARRATIVE: CASE EVENT DATE: 20240919
